FAERS Safety Report 12952947 (Version 1)
Quarter: 2016Q4

REPORT INFORMATION
  Report Type: Spontaneous
  Country: US (occurrence: US)
  Receive Date: 20161117
  Receipt Date: 20161117
  Transmission Date: 20170207
  Serious: No
  Sender: FDA-Public Use
  Company Number: US-ELI_LILLY_AND_COMPANY-US201607011740

PATIENT

DRUGS (3)
  1. METOPROLOL SUCCINATE. [Concomitant]
     Active Substance: METOPROLOL SUCCINATE
     Indication: HYPERTENSION
     Dosage: 50 MG, QD
     Route: 048
  2. CYMBALTA [Suspect]
     Active Substance: DULOXETINE HYDROCHLORIDE
     Indication: MENOPAUSAL SYMPTOMS
     Dosage: 60 MG, QD
     Route: 065
     Dates: start: 2008
  3. MAXZIDE [Concomitant]
     Active Substance: HYDROCHLOROTHIAZIDE\TRIAMTERENE
     Indication: HYPERTENSION
     Dosage: 1 DF, QD
     Route: 048

REACTIONS (14)
  - Mood swings [Unknown]
  - Drug withdrawal syndrome [Unknown]
  - Nausea [Unknown]
  - Paraesthesia [Unknown]
  - Lethargy [Unknown]
  - Dizziness [Unknown]
  - Insomnia [Unknown]
  - Dysphoria [Unknown]
  - Crying [Unknown]
  - Irritability [Unknown]
  - Fatigue [Unknown]
  - Agitation [Unknown]
  - Diarrhoea [Unknown]
  - Vertigo [Unknown]
